FAERS Safety Report 9713983 (Version 1)
Quarter: 2013Q4

REPORT INFORMATION
  Report Type: Spontaneous
  Country: US (occurrence: US)
  Receive Date: 20131126
  Receipt Date: 20131126
  Transmission Date: 20140711
  Serious: No
  Sender: FDA-Public Use
  Company Number: US-GILEAD-2008-0018412

PATIENT
  Age: 78 Year
  Sex: Female
  Weight: 86.18 kg

DRUGS (10)
  1. LETAIRIS [Suspect]
     Indication: PULMONARY ARTERIAL HYPERTENSION
     Route: 048
     Dates: start: 20080912, end: 20080915
  2. ATENOLOL [Concomitant]
  3. LISINOPRIL [Concomitant]
  4. DITROPAN [Concomitant]
  5. GABAPENTIN [Concomitant]
  6. LODINE [Concomitant]
  7. REVATIO [Concomitant]
  8. BONIVA [Concomitant]
  9. ASA LOW DOSE [Concomitant]
  10. CALCIUM [Concomitant]

REACTIONS (3)
  - Asthenia [None]
  - Headache [None]
  - Flushing [None]
